FAERS Safety Report 9115928 (Version 1)
Quarter: 2013Q1

REPORT INFORMATION
  Report Type: Spontaneous
  Country: US (occurrence: US)
  Receive Date: 20130225
  Receipt Date: 20130225
  Transmission Date: 20140127
  Serious: Yes (Other)
  Sender: FDA-Public Use
  Company Number: US-PFIZER INC-2013064372

PATIENT
  Age: 59 Year
  Sex: Female

DRUGS (2)
  1. ZYVOX [Suspect]
     Indication: STAPHYLOCOCCAL INFECTION
     Dosage: UNK
  2. ZOLOFT [Interacting]
     Indication: DEPRESSION
     Dosage: UNK

REACTIONS (3)
  - Drug interaction [Unknown]
  - Paranoia [Unknown]
  - Hearing impaired [Unknown]
